FAERS Safety Report 4269987-4 (Version None)
Quarter: 2004Q1

REPORT INFORMATION
  Report Type: 
  Country: None (occurrence: None)
  Receive Date: 20040113
  Receipt Date: 20040113
  Transmission Date: 20041129
  Serious: Yes (Hospitalization)
  Sender: FDA-Public Use
  Company Number: None

PATIENT
  Age: 80 Year
  Sex: Male

DRUGS (12)
  1. WARFARIN SODIUM [Suspect]
     Indication: ATRIAL FIBRILLATION
     Dosage: 7.5 MG QD
     Dates: start: 20010301
  2. DILTIAZEM [Suspect]
     Indication: HYPERTENSION
     Dosage: 360 MG QAM
     Dates: start: 20010401
  3. OXYCONTIN [Concomitant]
  4. ALBUTEROL [Concomitant]
  5. ATENOLOL [Concomitant]
  6. DIGOXIN [Concomitant]
  7. DILTIAZEM [Concomitant]
  8. FUROSEMIDE [Concomitant]
  9. GEMFIBROZIL [Concomitant]
  10. KCL TAB [Concomitant]
  11. LISINOPRIL [Concomitant]
  12. SPIRONOLACTONE [Concomitant]

REACTIONS (2)
  - BRADYCARDIA [None]
  - INTERNATIONAL NORMALISED RATIO INCREASED [None]
